FAERS Safety Report 5841784-5 (Version None)
Quarter: 2008Q3

REPORT INFORMATION
  Report Type: 
  Country: None (occurrence: None)
  Receive Date: 20080811
  Receipt Date: 20080811
  Transmission Date: 20090109
  Serious: Yes (Death)
  Sender: FDA-Public Use
  Company Number: None

PATIENT
  Age: 71 Year
  Sex: Male
  Weight: 66 kg

DRUGS (1)
  1. ACTIVASE [Suspect]
     Indication: ISCHAEMIC STROKE
     Dosage: 6 MG ONETIME IV BOLUS; 54 MG ONETIME IV DRIP
     Route: 040
     Dates: start: 20080603, end: 20080603

REACTIONS (4)
  - BASAL GANGLIA HAEMORRHAGE [None]
  - CARDIAC ARREST [None]
  - CEREBROVASCULAR ACCIDENT [None]
  - INTRAVENTRICULAR HAEMORRHAGE [None]
